FAERS Safety Report 25621932 (Version 2)
Quarter: 2025Q3

REPORT INFORMATION
  Report Type: Report from Study
  Country: EU (occurrence: EU)
  Receive Date: 20250730
  Receipt Date: 20250731
  Transmission Date: 20251020
  Serious: Yes (Other)
  Sender: JOHNSON AND JOHNSON
  Company Number: EU-JNJFOC-20250724604

PATIENT

DRUGS (4)
  1. ESKETAMINE [Suspect]
     Active Substance: ESKETAMINE
     Indication: Depression
     Dosage: INITIAL DOSE WITH 56 MG, (INDUCTION PHASE)
     Route: 045
  2. ESKETAMINE [Suspect]
     Active Substance: ESKETAMINE
     Dosage: SUBSEQUENT DOSES: 56 MG OR 84 MG (INDUCTION PHASE)
     Route: 045
  3. ESKETAMINE [Suspect]
     Active Substance: ESKETAMINE
     Dosage: WEEKS 5-8: MAINTENANCE PHASE (56 MG OR 84 MG)
     Route: 045
  4. ESKETAMINE [Suspect]
     Active Substance: ESKETAMINE
     Route: 045

REACTIONS (14)
  - Dissociation [Recovered/Resolved]
  - Cardiovascular disorder [Recovered/Resolved]
  - Hypoglycaemia [Recovered/Resolved]
  - Anxiety [Recovered/Resolved]
  - Dysphoria [Recovered/Resolved]
  - Somnolence [Recovered/Resolved]
  - Dizziness [Recovered/Resolved]
  - Insomnia [Recovered/Resolved]
  - Gastrointestinal disorder [Recovered/Resolved]
  - Drug ineffective [Unknown]
  - Adverse event [Unknown]
  - Nausea [Unknown]
  - Sedation [Unknown]
  - Hypertension [Unknown]
